FAERS Safety Report 23586193 (Version 1)
Quarter: 2024Q1

REPORT INFORMATION
  Report Type: Spontaneous
  Country: US (occurrence: US)
  Receive Date: 20240301
  Receipt Date: 20240301
  Transmission Date: 20240409
  Serious: Yes (Hospitalization)
  Sender: FDA-Public Use
  Company Number: US-Crown Laboratories, Inc.-2153917

PATIENT
  Age: 31 Year
  Sex: Female

DRUGS (1)
  1. PANOXYL [Suspect]
     Active Substance: BENZOYL PEROXIDE
     Route: 061
     Dates: start: 20240201, end: 20240201

REACTIONS (1)
  - Hypersensitivity [Not Recovered/Not Resolved]

NARRATIVE: CASE EVENT DATE: 20240201
